FAERS Safety Report 16734905 (Version 4)
Quarter: 2020Q1

REPORT INFORMATION
  Report Type: Spontaneous
  Country: US (occurrence: US)
  Receive Date: 20190823
  Receipt Date: 20200108
  Transmission Date: 20200409
  Serious: Yes (Death)
  Sender: FDA-Public Use
  Company Number: US-PFIZER INC-2019362293

PATIENT
  Age: 62 Year
  Sex: Female

DRUGS (13)
  1. DOCETAXEL SANDOZ [Suspect]
     Active Substance: DOCETAXEL
     Indication: TRIPLE NEGATIVE BREAST CANCER
     Dosage: 50 MG, CYCLIC (04 CYCLES, EVERY WEEK)
     Dates: start: 20120305, end: 20150702
  2. DOCETAXEL-SANOFI AVENTIS [Suspect]
     Active Substance: DOCETAXEL
     Indication: ADENOCARCINOMA
  3. BEVACIZUMAB. [Concomitant]
     Active Substance: BEVACIZUMAB
     Indication: CHEMOTHERAPY
     Dosage: UNK
  4. DOCETAXEL SANDOZ [Suspect]
     Active Substance: DOCETAXEL
     Indication: ADENOCARCINOMA
  5. DOCETAXEL-SANOFI AVENTIS [Suspect]
     Active Substance: DOCETAXEL
     Indication: TRIPLE NEGATIVE BREAST CANCER
     Dosage: 50 MG, CYCLIC (04 CYCLES, EVERY WEEK)
     Dates: start: 20120305, end: 20150702
  6. DOCETAXEL. [Suspect]
     Active Substance: DOCETAXEL
     Indication: ADENOCARCINOMA
     Dosage: UNK
     Dates: start: 20150318, end: 20150625
  7. DOCETAXEL ACCORD [Suspect]
     Active Substance: DOCETAXEL
     Indication: ADENOCARCINOMA
     Dosage: 50 MG, CYCLIC (04 CYCLES, EVERY WEEK)
     Dates: start: 20120305, end: 20150702
  8. PARAPLATIN [Concomitant]
     Active Substance: CARBOPLATIN
     Indication: CHEMOTHERAPY
     Dosage: UNK
  9. DOCETAXEL. [Suspect]
     Active Substance: DOCETAXEL
     Dosage: UNK
     Dates: start: 20150318, end: 20150625
  10. DOCETAXEL ACCORD [Suspect]
     Active Substance: DOCETAXEL
     Indication: TRIPLE NEGATIVE BREAST CANCER
  11. DOCETAXEL-MCKESSON [Suspect]
     Active Substance: DOCETAXEL
     Indication: ADENOCARCINOMA
  12. DOCETAXEL. [Suspect]
     Active Substance: DOCETAXEL
     Indication: TRIPLE NEGATIVE BREAST CANCER
     Dosage: 50 MG, CYCLIC (04 CYCLES, EVERY WEEK)
     Dates: start: 20120305, end: 20150702
  13. DOCETAXEL-MCKESSON [Suspect]
     Active Substance: DOCETAXEL
     Indication: TRIPLE NEGATIVE BREAST CANCER
     Dosage: 50 MG, CYCLIC (04 CYCLES, EVERY WEEK)
     Dates: start: 20120305, end: 20150702

REACTIONS (1)
  - Alopecia [Unknown]

NARRATIVE: CASE EVENT DATE: 20150330
